FAERS Safety Report 8589483-3 (Version None)
Quarter: 2012Q2

REPORT INFORMATION
  Report Type: 
  Country: None (occurrence: None)
  Receive Date: 20120423
  Receipt Date: 20100823
  Transmission Date: 20120825
  Serious: Yes (Other)
  Sender: FDA-Public Use
  Company Number: PHHY2010US56035

PATIENT
  Age: 85 Year
  Sex: Female

DRUGS (1)
  1. LETROZOLE [Suspect]
     Indication: BREAST CANCER METASTATIC
     Dosage: 2.5 MG, ORAL
     Route: 048
     Dates: start: 20100622

REACTIONS (1)
  - FOOT FRACTURE [None]
